FAERS Safety Report 4340816-3 (Version None)
Quarter: 2004Q2

REPORT INFORMATION
  Report Type: 
  Country: None (occurrence: None)
  Receive Date: 20040419
  Receipt Date: 20030718
  Transmission Date: 20050107
  Serious: No
  Sender: FDA-Public Use
  Company Number: US-GLAXOSMITHKLINE-A0418076A

PATIENT

DRUGS (1)
  1. ESKALITH [Suspect]
     Indication: DEPRESSION
     Route: 048

REACTIONS (2)
  - DRUG LEVEL INCREASED [None]
  - ILL-DEFINED DISORDER [None]
